FAERS Safety Report 7820102-7 (Version None)
Quarter: 2011Q4

REPORT INFORMATION
  Report Type: 
  Country: None (occurrence: None)
  Receive Date: 20111018
  Receipt Date: 20111006
  Transmission Date: 20120403
  Serious: Yes (Death, Hospitalization)
  Sender: FDA-Public Use
  Company Number: US-PFIZER INC-2010077301

PATIENT
  Age: 10 Year
  Sex: Female
  Weight: 44 kg

DRUGS (1)
  1. CRIZOTINIB [Suspect]
     Indication: ASTROCYTOMA
     Dosage: 215 MG/M2, 2X/DAY
     Route: 048
     Dates: start: 20100527, end: 20100616

REACTIONS (1)
  - HAEMORRHAGE INTRACRANIAL [None]
